FAERS Safety Report 5115361-8 (Version None)
Quarter: 2006Q3

REPORT INFORMATION
  Report Type: 
  Country: None (occurrence: None)
  Receive Date: 20060922
  Receipt Date: 20060914
  Transmission Date: 20061208
  Serious: Yes (Life-Threatening, Other)
  Sender: FDA-Public Use
  Company Number: 2006099988

PATIENT
  Age: 71 Year
  Sex: Female

DRUGS (5)
  1. ALPRAZOLAM [Suspect]
     Indication: ANXIETY
     Dosage: 2.5 MG (0.5 MG, 5 IN 1 D); ORAL
     Route: 048
     Dates: start: 20050101
  2. ALPRAZOLAM [Suspect]
     Indication: DEPRESSION
     Dosage: 2.5 MG (0.5 MG, 5 IN 1 D); ORAL
     Route: 048
     Dates: start: 20050101
  3. MELLARIL [Concomitant]
  4. AKINETON [Concomitant]
  5. PIPORTIL (PIPOTIAZINE) [Concomitant]

REACTIONS (3)
  - BLADDER PROLAPSE [None]
  - RECTAL PROLAPSE [None]
  - UTERINE PROLAPSE [None]
